FAERS Safety Report 4293408-9 (Version None)
Quarter: 2004Q1

REPORT INFORMATION
  Report Type: 
  Country: None (occurrence: None)
  Receive Date: 20040212
  Receipt Date: 20030620
  Transmission Date: 20041129
  Serious: Yes (Other)
  Sender: FDA-Public Use
  Company Number: US-GLAXOSMITHKLINE-A0413332A

PATIENT
  Age: 54 Year
  Sex: Female

DRUGS (5)
  1. PAXIL [Suspect]
     Route: 048
     Dates: end: 20030601
  2. CHOLESTEROL REDUCING AGENT [Concomitant]
  3. BLOOD PRESSURE MEDICATION [Concomitant]
  4. PAIN MEDICATION [Concomitant]
  5. HORMONE REPLACEMENT [Concomitant]

REACTIONS (1)
  - SUICIDE ATTEMPT [None]
